FAERS Safety Report 25688740 (Version 1)
Quarter: 2025Q3

REPORT INFORMATION
  Report Type: Spontaneous
  Country: CN (occurrence: CN)
  Receive Date: 20250818
  Receipt Date: 20250818
  Transmission Date: 20251021
  Serious: Yes (Disabling)
  Sender: JIANGSU HENGRUI
  Company Number: CN-JIANGSU HENGRUI PHARMACEUTICALS CO., LTD.-H2025228226

PATIENT
  Age: 3 Week
  Weight: 2 kg

DRUGS (1)
  1. DEXMEDETOMIDINE HYDROCHLORIDE [Suspect]
     Active Substance: DEXMEDETOMIDINE HYDROCHLORIDE
     Indication: Sedation

REACTIONS (3)
  - Cyanosis [Recovered/Resolved]
  - Infantile apnoea [Recovered/Resolved]
  - Oxygen saturation decreased [Recovered/Resolved]
